FAERS Safety Report 21928386 (Version 21)
Quarter: 2023Q2

REPORT INFORMATION
  Report Type: Report from Study
  Country: IE (occurrence: IE)
  Receive Date: 20230130
  Receipt Date: 20230426
  Transmission Date: 20230722
  Serious: Yes (Hospitalization, Other)
  Sender: FDA-Public Use
  Company Number: IE-ABBVIE-4271574

PATIENT
  Sex: Male

DRUGS (37)
  1. CARBIDOPA\LEVODOPA [Suspect]
     Active Substance: CARBIDOPA\LEVODOPA
     Indication: Parkinson^s disease
     Dosage: 2 CASSETTE
     Route: 050
     Dates: start: 20190402
  2. CARBIDOPA\LEVODOPA [Suspect]
     Active Substance: CARBIDOPA\LEVODOPA
     Dosage: MORNING DOSE 9MLS. CONTINUOUS DOSE 4.5MLS.
     Route: 050
     Dates: start: 202302, end: 202302
  3. CARBIDOPA\LEVODOPA [Suspect]
     Active Substance: CARBIDOPA\LEVODOPA
     Dosage: FREQUENCY TEXT: CONTINUOUS
     Route: 050
  4. CARBIDOPA\LEVODOPA [Suspect]
     Active Substance: CARBIDOPA\LEVODOPA
     Dosage: FREQUENCY TEXT: CONTINUOUS
     Route: 050
  5. CARBIDOPA\LEVODOPA [Suspect]
     Active Substance: CARBIDOPA\LEVODOPA
     Dosage: MORNING DOSE 9.5MLS. CONTINUOUS DOSE 4.9MLS.
     Route: 050
     Dates: start: 20230201, end: 202302
  6. CARBIDOPA\LEVODOPA [Suspect]
     Active Substance: CARBIDOPA\LEVODOPA
     Dosage: 1 CASSETTE, ?FREQUENCY TEXT: CONTINUOUS
     Route: 050
     Dates: start: 20160318
  7. CARBIDOPA\LEVODOPA [Suspect]
     Active Substance: CARBIDOPA\LEVODOPA
     Dosage: DAY: MD 9ML, CR 4.9ML/HR ED 0ML NIGHT: CR 3.7ML/HR. ED 0ML?DISCONTINUED IN 2023
     Route: 050
     Dates: start: 202302
  8. CARBIDOPA\LEVODOPA [Suspect]
     Active Substance: CARBIDOPA\LEVODOPA
     Dosage: DAY PUMP MD 9MLS/HR; CR 5.3MLS/HR; ED 0MLS/HR AND NIGHT PUMP CR 3.9MLS/HR ; ED 0MLS/HR?2023-START...
     Route: 050
     Dates: start: 2023
  9. UROTECIN [Concomitant]
     Indication: Product used for unknown indication
     Dosage: FREQUENCY NIGHT
     Route: 050
  10. LIPITOR [Concomitant]
     Active Substance: ATORVASTATIN CALCIUM
     Indication: Product used for unknown indication
     Route: 065
  11. SINEMET [Concomitant]
     Active Substance: CARBIDOPA\LEVODOPA
     Indication: Product used for unknown indication
     Route: 048
  12. PANTOPRAZOLE [Concomitant]
     Active Substance: PANTOPRAZOLE
     Indication: Product used for unknown indication
     Route: 065
  13. PRAMIPEXOLE [Concomitant]
     Active Substance: PRAMIPEXOLE
     Indication: Product used for unknown indication
     Dosage: 0.26 MG
  14. PRAMIPEXOLE [Concomitant]
     Active Substance: PRAMIPEXOLE
     Indication: Product used for unknown indication
     Dosage: 0.088MG
     Route: 065
  15. MYCOSTATIN [Concomitant]
     Active Substance: NYSTATIN
     Indication: Product used for unknown indication
     Route: 065
  16. ZOPICLONE [Concomitant]
     Active Substance: ZOPICLONE
     Indication: Product used for unknown indication
     Dosage: 7.5 MG
  17. ALLOPURINOL [Concomitant]
     Active Substance: ALLOPURINOL
     Indication: Product used for unknown indication
     Route: 065
  18. AVODART [Concomitant]
     Active Substance: DUTASTERIDE
     Indication: Product used for unknown indication
     Dosage: 0.5 MG?FREQUENCY: NIGHT
     Route: 050
  19. AMLODIPINE [Concomitant]
     Active Substance: AMLODIPINE BESYLATE
     Indication: Product used for unknown indication
     Route: 065
  20. NEXIUM [Concomitant]
     Active Substance: ESOMEPRAZOLE MAGNESIUM
     Indication: Product used for unknown indication
     Route: 065
  21. ACETAMINOPHEN [Concomitant]
     Active Substance: ACETAMINOPHEN
     Indication: Product used for unknown indication
     Route: 065
  22. LEVOTHYROXINE [Concomitant]
     Active Substance: LEVOTHYROXINE
     Indication: Product used for unknown indication
     Route: 065
  23. ARIPIPRAZOLE [Concomitant]
     Active Substance: ARIPIPRAZOLE
     Indication: Product used for unknown indication
     Route: 065
  24. REQUIP [Concomitant]
     Active Substance: ROPINIROLE HYDROCHLORIDE
     Indication: Product used for unknown indication
     Route: 065
  25. AZILECT [Concomitant]
     Active Substance: RASAGILINE MESYLATE
     Indication: Product used for unknown indication
     Route: 065
  26. MAXITROL [Concomitant]
     Active Substance: DEXAMETHASONE\NEOMYCIN SULFATE\POLYMYXIN B SULFATE
     Indication: Product used for unknown indication
     Route: 065
  27. RIVOTRIL [Concomitant]
     Active Substance: CLONAZEPAM
     Indication: Product used for unknown indication
     Dosage: 0.75MG, NIGHT
     Route: 065
  28. VALACYCLOVIR [Concomitant]
     Active Substance: VALACYCLOVIR HYDROCHLORIDE
     Indication: Product used for unknown indication
     Route: 065
  29. ASPIRIN [Concomitant]
     Active Substance: ASPIRIN
     Indication: Product used for unknown indication
     Route: 065
  30. NEULASTA [Concomitant]
     Active Substance: PEGFILGRASTIM
     Indication: Product used for unknown indication
     Route: 065
  31. DETRUSITOL [Concomitant]
     Active Substance: TOLTERODINE TARTRATE
     Indication: Product used for unknown indication
     Route: 065
  32. VITAMIN B12 [Concomitant]
     Active Substance: CYANOCOBALAMIN
     Indication: Product used for unknown indication
     Route: 065
  33. SEPTIN [Concomitant]
     Indication: Product used for unknown indication
     Dosage: TIME INTERVAL: 0.33333333 WEEKS
     Route: 065
  34. LYRICA [Concomitant]
     Active Substance: PREGABALIN
     Indication: Product used for unknown indication
     Route: 065
  35. BENSERAZIDE HYDROCHLORIDE\LEVODOPA [Concomitant]
     Active Substance: BENSERAZIDE HYDROCHLORIDE\LEVODOPA
     Indication: Product used for unknown indication
     Dosage: NIGHT EXTRA
     Route: 065
  36. TRAZODONE [Concomitant]
     Active Substance: TRAZODONE HYDROCHLORIDE
     Indication: Product used for unknown indication
     Dosage: 25.5 MG; FREQUENCY: NIGHT
  37. DEXAMETHASONE [Concomitant]
     Active Substance: DEXAMETHASONE
     Indication: Product used for unknown indication
     Dosage: FREQUENCY TEXT: AS PER CHEMO PRESCRIPTION
     Route: 065

REACTIONS (28)
  - Embedded device [Recovered/Resolved]
  - Mental disorder [Recovered/Resolved]
  - Gait disturbance [Recovered/Resolved]
  - Aggression [Recovered/Resolved]
  - Device delivery system issue [Recovered/Resolved]
  - Hospitalisation [Unknown]
  - Crying [Recovered/Resolved]
  - Device dislocation [Recovered/Resolved]
  - Bradykinesia [Not Recovered/Not Resolved]
  - Wrong technique in product usage process [Recovered/Resolved]
  - Weight decreased [Recovered/Resolved]
  - Off label use [Recovered/Resolved]
  - Patient-device incompatibility [Recovered/Resolved]
  - Head discomfort [Recovered/Resolved]
  - Dyskinesia [Recovered/Resolved]
  - Emotional disorder [Recovered/Resolved]
  - Device programming error [Not Recovered/Not Resolved]
  - Psychotic disorder [Recovered/Resolved]
  - Neurotransmitter level altered [Recovered/Resolved]
  - On and off phenomenon [Recovered/Resolved]
  - Device issue [Recovered/Resolved]
  - Reduced facial expression [Recovered/Resolved]
  - Delusional disorder, unspecified type [Recovered/Resolved]
  - Paranoia [Recovered/Resolved]
  - Bradykinesia [Recovered/Resolved]
  - Depressed mood [Recovered/Resolved]
  - Slow speech [Recovered/Resolved]
  - Anger [Recovered/Resolved]

NARRATIVE: CASE EVENT DATE: 20190401
